FAERS Safety Report 9586606 (Version 1)
Quarter: 2013Q4

REPORT INFORMATION
  Report Type: Spontaneous
  Country: US (occurrence: US)
  Receive Date: 20131003
  Receipt Date: 20131003
  Transmission Date: 20140711
  Serious: No
  Sender: FDA-Public Use
  Company Number: US-MYLANLABS-2013S1014146

PATIENT
  Age: 80 Year
  Sex: Female

DRUGS (3)
  1. LEVALBUTEROL INHALATION SOLUTION USP [Suspect]
     Indication: CHRONIC OBSTRUCTIVE PULMONARY DISEASE
     Dosage: TID TO QID
     Route: 055
  2. ATACAND [Concomitant]
     Indication: BLOOD PRESSURE INCREASED
     Route: 048
  3. COREG [Concomitant]
     Indication: BLOOD CHOLESTEROL INCREASED
     Route: 048

REACTIONS (2)
  - Drug effect decreased [Not Recovered/Not Resolved]
  - Chronic obstructive pulmonary disease [Not Recovered/Not Resolved]
